FAERS Safety Report 25655854 (Version 1)
Quarter: 2025Q3

REPORT INFORMATION
  Report Type: Report from Study
  Country: IN (occurrence: IN)
  Receive Date: 20250807
  Receipt Date: 20250807
  Transmission Date: 20251020
  Serious: Yes (Other)
  Sender: DAIICHI
  Company Number: IN-AstraZeneca-CH-00920196A

PATIENT
  Age: 55 Year
  Sex: Female
  Weight: 55 kg

DRUGS (1)
  1. ENHERTU [Suspect]
     Active Substance: FAM-TRASTUZUMAB DERUXTECAN-NXKI
     Indication: Product used for unknown indication
     Dosage: UNK UNK, ONCE EVERY 3 WK
     Route: 040
     Dates: start: 20250714

REACTIONS (8)
  - Cardiac disorder [Unknown]
  - Coronary artery occlusion [Unknown]
  - Ejection fraction decreased [Unknown]
  - Blood creatinine increased [Unknown]
  - Procedural pain [Unknown]
  - Back pain [Unknown]
  - Scar [Unknown]
  - Furuncle [Unknown]
